FAERS Safety Report 8211091 (Version 3)
Quarter: 2013Q3

REPORT INFORMATION
  Report Type: Spontaneous
  Country: US (occurrence: None)
  Receive Date: 20111019
  Receipt Date: 20130708
  Transmission Date: 20140515
  Serious: Yes (Hospitalization, Other)
  Sender: FDA-Public Use
  Company Number: AUR-APU-2011-05452

PATIENT
  Age: 48 Year
  Sex: Female

DRUGS (9)
  1. LAMOTRIGINE [Suspect]
     Indication: DEPRESSED MOOD
     Dosage: (50 MG), UNKNOWN (100 MG, 1 D), UNKNOWN
     Dates: start: 20110823, end: 20110825
  2. LAMOTRIGINE [Suspect]
     Indication: DEPRESSED MOOD
     Dosage: (1 DOSAGE FORMS, 1 D), ORAL
     Route: 048
     Dates: start: 20110826, end: 20110830
  3. COREG [Concomitant]
  4. RAMIPRIL [Concomitant]
  5. SYNTHROID [Concomitant]
  6. COUMADIN [Concomitant]
  7. SENNA PLUS (SENNA ALEXANDRINA) [Concomitant]
  8. COLACE [Concomitant]
  9. CELEXA [Concomitant]

REACTIONS (6)
  - Drug reaction with eosinophilia and systemic symptoms [None]
  - Stevens-Johnson syndrome [None]
  - Nerve injury [None]
  - Oropharyngeal blistering [None]
  - Injection site reaction [None]
  - Drug prescribing error [None]
